FAERS Safety Report 21784800 (Version 1)
Quarter: 2022Q4

REPORT INFORMATION
  Report Type: Spontaneous
  Country: BR (occurrence: BR)
  Receive Date: 20221227
  Receipt Date: 20221227
  Transmission Date: 20230113
  Serious: Yes (Hospitalization, Other)
  Sender: FDA-Public Use
  Company Number: BR-DSJP-DSE-2022-146346

PATIENT
  Age: 81 Year
  Sex: Male
  Weight: 70 kg

DRUGS (4)
  1. EDOXABAN TOSYLATE [Suspect]
     Active Substance: EDOXABAN TOSYLATE
     Indication: Product used for unknown indication
     Dosage: 60 MG
     Route: 065
     Dates: start: 202001
  2. SOTALOL [Concomitant]
     Active Substance: SOTALOL
     Indication: Product used for unknown indication
     Dosage: UNK
     Route: 065
  3. ENALAPRIL [Concomitant]
     Active Substance: ENALAPRIL
     Indication: Atrial fibrillation
     Dosage: 10 MG
     Route: 065
  4. ENALAPRIL [Concomitant]
     Active Substance: ENALAPRIL
     Indication: Hypertension

REACTIONS (5)
  - Haemorrhage intracranial [Unknown]
  - Aphasia [Unknown]
  - Dysphagia [Unknown]
  - Hemiparesis [Unknown]
  - Pneumonia aspiration [Unknown]

NARRATIVE: CASE EVENT DATE: 20221101
